FAERS Safety Report 13960567 (Version 1)
Quarter: 2017Q3

REPORT INFORMATION
  Report Type: Spontaneous
  Country: US (occurrence: US)
  Receive Date: 20170912
  Receipt Date: 20170912
  Transmission Date: 20171128
  Serious: No
  Sender: FDA-Public Use
  Company Number: US-ALLERGAN-1681413US

PATIENT
  Sex: Female
  Weight: 70.31 kg

DRUGS (7)
  1. MS CONTIN [Concomitant]
     Active Substance: MORPHINE SULFATE
     Indication: PAIN
     Dosage: 15 MG, QD
     Route: 065
  2. LEXAPRO [Suspect]
     Active Substance: ESCITALOPRAM OXALATE
     Indication: DEPRESSION
     Dosage: 20 MG, QD
     Route: 065
     Dates: start: 201602
  3. METOPROLOL. [Concomitant]
     Active Substance: METOPROLOL
     Indication: HYPERTENSION
     Dosage: 25 MG, UNK
     Route: 065
     Dates: start: 201602
  4. ZANTAC [Concomitant]
     Active Substance: RANITIDINE HYDROCHLORIDE
     Indication: DYSPEPSIA
     Dosage: 150 MG, ONCE OR TWICE DAILY AFTER A MEAL
     Route: 065
  5. LYRICA [Concomitant]
     Active Substance: PREGABALIN
     Indication: PAIN
     Dosage: 75 MG, TID
     Route: 065
     Dates: start: 201607
  6. AMLODIPINE [Concomitant]
     Active Substance: AMLODIPINE BESYLATE
     Indication: HYPERTENSION
     Dosage: 5 MG, QD
     Route: 065
     Dates: start: 201602
  7. PROTONIX [Concomitant]
     Active Substance: PANTOPRAZOLE SODIUM
     Indication: DYSPEPSIA
     Dosage: 20 MG, QD OR BID
     Route: 065

REACTIONS (14)
  - Pain [Not Recovered/Not Resolved]
  - Abdominal pain upper [Unknown]
  - Drug ineffective [Unknown]
  - Dizziness [Unknown]
  - Malaise [Not Recovered/Not Resolved]
  - Decreased appetite [Unknown]
  - Incontinence [Unknown]
  - Withdrawal syndrome [Unknown]
  - Dysstasia [Unknown]
  - Cough [Unknown]
  - Sneezing [Unknown]
  - Weight increased [Not Recovered/Not Resolved]
  - Feeling abnormal [Unknown]
  - Nausea [Not Recovered/Not Resolved]
